FAERS Safety Report 14872893 (Version 2)
Quarter: 2018Q2

REPORT INFORMATION
  Report Type: Other
  Country: GB (occurrence: GB)
  Receive Date: 20180510
  Receipt Date: 20180629
  Transmission Date: 20180711
  Serious: No
  Sender: FDA-Public Use
  Company Number: GB-LUPIN PHARMACEUTICALS INC.-2018-00325

PATIENT
  Age: 65 Year
  Sex: Female
  Weight: 64 kg

DRUGS (7)
  1. ESTRIOL [Concomitant]
     Active Substance: ESTRIOL
     Indication: ILL-DEFINED DISORDER
     Dosage: UNK (APPLY WEEKLY)
     Route: 065
     Dates: start: 20151119
  2. TESTOSTERONE. [Concomitant]
     Active Substance: TESTOSTERONE
     Indication: ILL-DEFINED DISORDER
     Dosage: UNK (TAKE ONE ON ALTERNATE DAYS AS DIRECTED)
     Route: 065
     Dates: start: 20170718
  3. MIGRALEVE                          /00116401/ [Concomitant]
     Indication: ILL-DEFINED DISORDER
     Dosage: UNK (1 OR 2 TABLETS AT ONSET OF ATTACK)
     Route: 065
     Dates: start: 20170106
  4. ZINERYT [Concomitant]
     Indication: ILL-DEFINED DISORDER
     Dosage: UNK UNK, BID (APPLY TWICE A DAY)
     Route: 065
     Dates: start: 20160511
  5. AMITRIPTYLINE HYDROCHLORIDE. [Concomitant]
     Active Substance: AMITRIPTYLINE HYDROCHLORIDE
     Indication: ILL-DEFINED DISORDER
     Dosage: 1 DF, QD (ONE IN THE EVENING)
     Route: 065
     Dates: start: 20161121
  6. SIMVASTATIN. [Suspect]
     Active Substance: SIMVASTATIN
     Indication: PRODUCT USED FOR UNKNOWN INDICATION
     Dosage: UNK
     Route: 065
     Dates: start: 20100101
  7. SUMATRIPTAN. [Concomitant]
     Active Substance: SUMATRIPTAN
     Indication: ILL-DEFINED DISORDER
     Dosage: UNK (TAKE ONE AS DIRECTED. KEEP USE TO A MINIMUM)
     Route: 065
     Dates: start: 20170106

REACTIONS (1)
  - Malaise [Recovered/Resolved]

NARRATIVE: CASE EVENT DATE: 20171222
